FAERS Safety Report 8991197 (Version 3)
Quarter: 2013Q1

REPORT INFORMATION
  Report Type: Spontaneous
  Country: US (occurrence: None)
  Receive Date: 20121219
  Receipt Date: 20130204
  Transmission Date: 20140127
  Serious: Yes (Other)
  Sender: FDA-Public Use
  Company Number: AUR-APL-2012-05420

PATIENT
  Age: 75 Year
  Sex: Male

DRUGS (16)
  1. CIPROFLOXACIN [Suspect]
     Indication: PROSTATISM
     Route: 048
  2. FLUCONAZOLE [Suspect]
     Indication: PROPHYLAXIS
     Route: 048
  3. OMEPRAZOLE (OMEPRAZOLE) [Suspect]
     Indication: PRODUCT USED FOR UNKNOWN INDICATION
     Route: 048
  4. BORTEZOMIB [Suspect]
     Indication: PLASMA CELL MYELOMA
     Dosage: CYCLIC
  5. AMIODARONE HCL [Suspect]
     Indication: PRODUCT USED FOR UNKNOWN INDICATION
     Route: 048
  6. AMLODIPINE (AMLODIPINE) [Concomitant]
  7. ASPIRIN (ACETYLSALICYLIC ACID) [Concomitant]
  8. ATENOLOL (ATENOLOL) [Concomitant]
  9. DEXAMETHASONE (DEXAMETHASONE) [Concomitant]
  10. FERROUS SULFATE (FERROUS SULFATE) [Concomitant]
  11. FOLIC ACID (FOLIC ACID) [Concomitant]
  12. HYDROCHLOROTHIAZIDE [Concomitant]
  13. POTASSIUM (POTASSIUM) [Concomitant]
  14. PRAZOSIN (PRAZOSIN) [Concomitant]
  15. SIMVASTATIN (SIMVASTATIN) [Concomitant]
  16. VITAMIN D (ERGOCALCIFEROL) [Concomitant]

REACTIONS (6)
  - Autonomic neuropathy [None]
  - Neuropathy peripheral [None]
  - Syncope [None]
  - Bedridden [None]
  - Orthostatic hypotension [None]
  - Drug interaction [None]
